FAERS Safety Report 4937158-1 (Version None)
Quarter: 2006Q1

REPORT INFORMATION
  Report Type: 
  Country: None (occurrence: None)
  Receive Date: 20060307
  Receipt Date: 20060307
  Transmission Date: 20060701
  Serious: Yes (Other)
  Sender: FDA-Public Use
  Company Number: None

PATIENT
  Age: 75 Year
  Sex: Male
  Weight: 71.8951 kg

DRUGS (1)
  1. FLUOXETINE HCL [Suspect]
     Dosage: 40 - 60 MG QD
     Dates: start: 20050101, end: 20050601

REACTIONS (4)
  - DISEASE RECURRENCE [None]
  - MAJOR DEPRESSION [None]
  - THERAPEUTIC RESPONSE UNEXPECTED WITH DRUG SUBSTITUTION [None]
  - THERAPY NON-RESPONDER [None]
